FAERS Safety Report 5653843-0 (Version None)
Quarter: 2008Q1

REPORT INFORMATION
  Report Type: 
  Country: None (occurrence: None)
  Receive Date: 20080306
  Receipt Date: 20080225
  Transmission Date: 20080703
  Serious: Yes (Other)
  Sender: FDA-Public Use
  Company Number: US-PFIZER INC-2008018037

PATIENT
  Sex: Male

DRUGS (4)
  1. VIAGRA [Suspect]
  2. WARFARIN SODIUM [Concomitant]
  3. ACE INHIBITOR NOS [Concomitant]
  4. TAMSULOSIN HCL [Concomitant]

REACTIONS (1)
  - RETINAL DETACHMENT [None]
